FAERS Safety Report 24702785 (Version 1)
Quarter: 2024Q4

REPORT INFORMATION
  Report Type: Spontaneous
  Country: US (occurrence: None)
  Receive Date: 20241205
  Receipt Date: 20241205
  Transmission Date: 20250115
  Serious: Yes (Hospitalization)
  Sender: Public
  Company Number: None

PATIENT
  Age: 58 Year
  Sex: Male
  Weight: 185 kg

DRUGS (2)
  1. WARFARIN SODIUM [Suspect]
     Active Substance: WARFARIN SODIUM
     Indication: Atrial fibrillation
     Dosage: FREQUENCY : DAILY;?
     Route: 048
  2. ENOXAPARIN [Suspect]
     Active Substance: ENOXAPARIN
     Indication: Atrial fibrillation
     Dosage: FREQUENCY : TWICE A DAY;?
     Route: 058

REACTIONS (7)
  - Breast haematoma [None]
  - Haemoglobin decreased [None]
  - Chest pain [None]
  - Blood glucose increased [None]
  - Contusion [None]
  - Decubitus ulcer [None]
  - Ulcer haemorrhage [None]

NARRATIVE: CASE EVENT DATE: 20160703
